FAERS Safety Report 7419656-4 (Version None)
Quarter: 2011Q2

REPORT INFORMATION
  Report Type: 
  Country: None (occurrence: None)
  Receive Date: 20110418
  Receipt Date: 20110413
  Transmission Date: 20111010
  Serious: Yes (Other)
  Sender: FDA-Public Use
  Company Number: US-AMGEN-USASP2011014434

PATIENT
  Age: 86 Year
  Sex: Female

DRUGS (3)
  1. GLUCOPHAGE [Concomitant]
  2. CAPTOPRIL [Concomitant]
  3. NPLATE [Suspect]
     Indication: IDIOPATHIC THROMBOCYTOPENIC PURPURA
     Dosage: 1.5 A?G/KG, UNK
     Dates: start: 20101206, end: 20110314

REACTIONS (1)
  - THROMBOSIS [None]
